FAERS Safety Report 8884638 (Version 2)
Quarter: 2014Q1

REPORT INFORMATION
  Report Type: Spontaneous
  Country: US (occurrence: US)
  Receive Date: 20121102
  Receipt Date: 20140106
  Transmission Date: 20141002
  Serious: No
  Sender: FDA-Public Use
  Company Number: US-ASTRAZENECA-2012SE80847

PATIENT
  Age: 69 Year
  Sex: Female
  Weight: 86.2 kg

DRUGS (3)
  1. ATACAND [Suspect]
     Indication: BLOOD PRESSURE INADEQUATELY CONTROLLED
     Route: 048
  2. ATACAND [Suspect]
     Indication: BLOOD PRESSURE INADEQUATELY CONTROLLED
     Dosage: QUARTER OF THE TABLET IN THE MORNING AND A QUARTER OF THE TABLET AT NIGHT, TWO TIMES A DAY
     Route: 048
     Dates: start: 20131111
  3. VITAMINS [Concomitant]

REACTIONS (8)
  - Muscular weakness [Unknown]
  - Headache [Unknown]
  - Blood pressure fluctuation [Unknown]
  - Varicose vein [Unknown]
  - Fatigue [Unknown]
  - Adrenal adenoma [Unknown]
  - Swelling [Unknown]
  - Intentional drug misuse [Unknown]
